FAERS Safety Report 8547663-7 (Version None)
Quarter: 2012Q3

REPORT INFORMATION
  Report Type: 
  Country: None (occurrence: None)
  Receive Date: 20120727
  Receipt Date: 20111201
  Transmission Date: 20120928
  Serious: Yes (Other)
  Sender: FDA-Public Use
  Company Number: US-ASTRAZENECA-2011SE67101

PATIENT
  Age: 31 Year
  Sex: Female
  Weight: 81.6 kg

DRUGS (8)
  1. SEROQUEL XR [Suspect]
     Indication: BIPOLAR II DISORDER
     Route: 048
     Dates: start: 20111017
  2. PAXIL [Concomitant]
     Route: 065
     Dates: start: 20111021
  3. LITHIUM CARBONATE [Concomitant]
     Indication: BIPOLAR II DISORDER
     Route: 048
     Dates: start: 20111020, end: 20111024
  4. SEROQUEL XR [Suspect]
     Route: 048
     Dates: start: 20111020
  5. SEROQUEL XR [Suspect]
     Route: 048
     Dates: start: 20111024, end: 20111105
  6. PEXEVA [Concomitant]
     Indication: BIPOLAR II DISORDER
     Route: 048
     Dates: start: 20111019, end: 20111024
  7. KLONOPIN [Concomitant]
     Indication: ANXIETY
     Dosage: AS REQUIRED
     Route: 048
     Dates: start: 20111006, end: 20111024
  8. SEROQUEL XR [Suspect]
     Route: 048
     Dates: start: 20111021, end: 20111024

REACTIONS (1)
  - ELECTROCARDIOGRAM QT PROLONGED [None]
